FAERS Safety Report 9263231 (Version 3)
Quarter: 2017Q3

REPORT INFORMATION
  Report Type: Spontaneous
  Country: US (occurrence: US)
  Receive Date: 20130430
  Receipt Date: 20170926
  Transmission Date: 20171128
  Serious: Yes (Hospitalization, Other)
  Sender: FDA-Public Use
  Company Number: US-ROCHE-1217305

PATIENT
  Age: 59 Year
  Sex: Female

DRUGS (6)
  1. ALENDRONATE [Suspect]
     Active Substance: ALENDRONATE SODIUM
     Indication: OSTEOPENIA
     Route: 048
     Dates: start: 20090503, end: 20110712
  2. FOSAMAX [Suspect]
     Active Substance: ALENDRONATE SODIUM
     Indication: OSTEOPENIA
     Route: 048
     Dates: start: 20070119, end: 20080107
  3. FOSAMAX PLUS D [Suspect]
     Active Substance: ALENDRONATE SODIUM\CHOLECALCIFEROL
     Indication: OSTEOPENIA
     Dosage: DOSE: 70/2800
     Route: 048
     Dates: start: 20080107, end: 20090503
  4. BONIVA [Suspect]
     Active Substance: IBANDRONATE SODIUM
     Indication: OSTEOPOROSIS
     Route: 048
     Dates: start: 20051209, end: 20070119
  5. FOSAMAX [Suspect]
     Active Substance: ALENDRONATE SODIUM
     Indication: OSTEOPOROSIS
     Route: 048
     Dates: start: 20030121, end: 20051209
  6. BONIVA [Suspect]
     Active Substance: IBANDRONATE SODIUM
     Indication: OSTEOPENIA

REACTIONS (6)
  - Stress fracture [Unknown]
  - Low turnover osteopathy [Unknown]
  - Anxiety [Unknown]
  - Femur fracture [Unknown]
  - Femur fracture [Unknown]
  - Emotional distress [Unknown]

NARRATIVE: CASE EVENT DATE: 20110712
